FAERS Safety Report 8822312 (Version 2)
Quarter: 2012Q4

REPORT INFORMATION
  Report Type: 
  Country: US (occurrence: US)
  Receive Date: 20121003
  Receipt Date: 20121022
  Transmission Date: 20130627
  Serious: Yes (Hospitalization)
  Sender: FDA-Public Use
  Company Number: US-BAYER-2012-101131

PATIENT
  Age: 17 Year
  Sex: Female

DRUGS (6)
  1. YAZ [Suspect]
     Indication: PREMENSTRUAL SYNDROME
  2. YAZ [Suspect]
     Indication: PREMENSTRUAL SYNDROME
  3. BACLOFEN [Concomitant]
  4. ATIVAN [Concomitant]
  5. PROMETHAZINE [Concomitant]
  6. LORTAB [Concomitant]
     Indication: PAIN

REACTIONS (1)
  - Pulmonary embolism [Recovering/Resolving]
